FAERS Safety Report 20908868 (Version 2)
Quarter: 2022Q2

REPORT INFORMATION
  Report Type: Report from Study
  Country: CA (occurrence: CA)
  Receive Date: 20220603
  Receipt Date: 20220608
  Transmission Date: 20220721
  Serious: Yes (Other)
  Sender: FDA-Public Use
  Company Number: CA-SAMSUNG BIOEPIS-SB-2022-13309

PATIENT
  Age: 33 Year
  Sex: Male

DRUGS (1)
  1. HADLIMA [Suspect]
     Active Substance: ADALIMUMAB-BWWD
     Indication: Hidradenitis
     Dosage: 40 MG/0.8ML
     Route: 065
     Dates: start: 20210928, end: 202201

REACTIONS (5)
  - Abscess [Recovering/Resolving]
  - Hidradenitis [Recovering/Resolving]
  - Scab [Unknown]
  - Wound [Unknown]
  - Scar [Not Recovered/Not Resolved]
